FAERS Safety Report 7583535-2 (Version None)
Quarter: 2011Q2

REPORT INFORMATION
  Report Type: 
  Country: None (occurrence: None)
  Receive Date: 20110630
  Receipt Date: 20110620
  Transmission Date: 20111010
  Serious: Yes (Hospitalization)
  Sender: FDA-Public Use
  Company Number: CH-ROCHE-781401

PATIENT
  Age: 66 Year
  Sex: Female

DRUGS (3)
  1. CISPLATIN [Suspect]
     Indication: NON-SMALL CELL LUNG CANCER
     Dosage: LAST DOSE PRIOR SAE: 19 MAY 2011, TEMPORARILY DISCONTINUED.
     Route: 042
     Dates: start: 20110407
  2. BEVACIZUMAB [Suspect]
     Indication: NON-SMALL CELL LUNG CANCER
     Dosage: LAST DOSE PRIOR TO SAE: 19 MAY 2011
     Route: 042
     Dates: start: 20110407
  3. PEMETREXED [Suspect]
     Indication: NON-SMALL CELL LUNG CANCER
     Dosage: LAST DOSE PRIOR SAE: 19 MAY 2011, TEMPORARILY DISCONTINUED.
     Route: 042
     Dates: start: 20110407

REACTIONS (1)
  - STATUS EPILEPTICUS [None]
